FAERS Safety Report 8086617 (Version 5)
Quarter: 2012Q4

REPORT INFORMATION
  Report Type: 
  Country: US (occurrence: US)
  Receive Date: 20110811
  Receipt Date: 20121012
  Transmission Date: 20130627
  Serious: Yes (Hospitalization)
  Sender: FDA-Public Use
  Company Number: US-GLAXOSMITHKLINE-A0840352A

PATIENT
  Age: 58 Year
  Sex: Female
  Weight: 87.7 kg

DRUGS (6)
  1. AVANDIA [Suspect]
     Indication: TYPE 2 DIABETES MELLITUS
     Dosage: 4MG Per day
     Route: 048
     Dates: start: 2002, end: 20070816
  2. METFORMIN [Concomitant]
  3. AVAPRO [Concomitant]
  4. PRAVASTATIN [Concomitant]
  5. TARKA [Concomitant]
  6. DETROL [Concomitant]

REACTIONS (3)
  - Myocardial ischaemia [Unknown]
  - Acute myocardial infarction [Unknown]
  - Coronary artery disease [Unknown]
